FAERS Safety Report 18399488 (Version 2)
Quarter: 2020Q4

REPORT INFORMATION
  Report Type: Spontaneous
  Country: AU (occurrence: AU)
  Receive Date: 20201019
  Receipt Date: 20201019
  Transmission Date: 20210114
  Serious: Yes (Hospitalization)
  Sender: FDA-Public Use
  Company Number: AU-PFIZER INC-2020396092

PATIENT
  Age: 16 Year
  Sex: Female
  Weight: 91 kg

DRUGS (2)
  1. PANADOL [Interacting]
     Active Substance: ACETAMINOPHEN
     Dosage: 50 DF
     Route: 048
  2. ACETYLCYSTEINE. [Suspect]
     Active Substance: ACETYLCYSTEINE
     Indication: TOXICITY TO VARIOUS AGENTS
     Dosage: 13.5 G, (OVER 15 MINUTES)
     Route: 042

REACTIONS (3)
  - Drug interaction [Recovered/Resolved]
  - Asthma [Recovered/Resolved]
  - Bronchospasm [Recovered/Resolved]
